FAERS Safety Report 9868757 (Version 6)
Quarter: 2014Q2

REPORT INFORMATION
  Report Type: Spontaneous
  Country: US (occurrence: US)
  Receive Date: 20140204
  Receipt Date: 20140616
  Transmission Date: 20141212
  Serious: Yes (Hospitalization, Other)
  Sender: FDA-Public Use
  Company Number: US-TMC-CABO-13003774

PATIENT
  Age: 47 Year
  Sex: Male

DRUGS (7)
  1. COMETRIQ [Suspect]
     Indication: METASTASIS
     Dosage: 140 MG, QD
     Route: 048
     Dates: start: 20131202, end: 20140124
  2. COMETRIQ [Suspect]
     Dosage: 100 MG, QD
     Route: 048
     Dates: start: 20140203, end: 20140507
  3. COUMADIN [Concomitant]
     Dosage: UNK
     Dates: end: 20140119
  4. LEVOTHYROXINE [Concomitant]
  5. VITAMIN D3 [Concomitant]
  6. LOMOTIL [Concomitant]
  7. VANDETANIB [Concomitant]

REACTIONS (18)
  - Loss of consciousness [Recovered/Resolved]
  - Cerebrovascular accident [Recovered/Resolved]
  - Peroneal nerve palsy [Recovering/Resolving]
  - Nerve injury [Recovering/Resolving]
  - Feeling abnormal [Recovering/Resolving]
  - Myalgia [Recovering/Resolving]
  - Muscular weakness [Recovering/Resolving]
  - Musculoskeletal pain [Recovering/Resolving]
  - Hypoaesthesia [Recovering/Resolving]
  - Neuropathy peripheral [Recovering/Resolving]
  - Coordination abnormal [Recovering/Resolving]
  - Back pain [Recovering/Resolving]
  - Abdominal pain [Unknown]
  - Fatigue [Recovering/Resolving]
  - Diarrhoea [Recovering/Resolving]
  - Nausea [Recovering/Resolving]
  - Malignant neoplasm progression [Unknown]
  - Off label use [Unknown]
